FAERS Safety Report 5424759-X (Version None)
Quarter: 2007Q3

REPORT INFORMATION
  Report Type: 
  Country: None (occurrence: None)
  Receive Date: 20070822
  Receipt Date: 20070810
  Transmission Date: 20080115
  Serious: Yes (Hospitalization)
  Sender: FDA-Public Use
  Company Number: 012901

PATIENT
  Age: 61 Year
  Sex: Male

DRUGS (4)
  1. PRIALT [Suspect]
     Indication: PAIN
     Dosage: 0.05 UG, ONCE/HOUR, INTRATHECAL, 0.6 UG, ONCE/HOUR, INTRATHECAL, UG, ONCE/HOUR, INTRATHECAL
     Route: 037
     Dates: start: 20070301, end: 20070301
  2. PRIALT [Suspect]
     Indication: PAIN
     Dosage: 0.05 UG, ONCE/HOUR, INTRATHECAL, 0.6 UG, ONCE/HOUR, INTRATHECAL, UG, ONCE/HOUR, INTRATHECAL
     Route: 037
     Dates: start: 20070301, end: 20070301
  3. PRIALT [Suspect]
     Indication: PAIN
     Dosage: 0.05 UG, ONCE/HOUR, INTRATHECAL, 0.6 UG, ONCE/HOUR, INTRATHECAL, UG, ONCE/HOUR, INTRATHECAL
     Route: 037
     Dates: start: 20070301
  4. NUBAIN [Suspect]

REACTIONS (7)
  - CONDITION AGGRAVATED [None]
  - DYSURIA [None]
  - HEADACHE [None]
  - MUSCULAR WEAKNESS [None]
  - NAUSEA [None]
  - PAIN [None]
  - VOMITING [None]
